FAERS Safety Report 6445165-5 (Version None)
Quarter: 2009Q4

REPORT INFORMATION
  Report Type: 
  Country: None (occurrence: None)
  Receive Date: 20091118
  Receipt Date: 20091020
  Transmission Date: 20100525
  Serious: Yes (Hospitalization, Other)
  Sender: FDA-Public Use
  Company Number: GB-ASTRAZENECA-2009SE21533

PATIENT
  Sex: Female

DRUGS (2)
  1. FASLODEX [Suspect]
     Route: 030
     Dates: start: 20090421
  2. ARIMIDEX [Suspect]
     Dosage: DAILY
     Route: 048

REACTIONS (3)
  - BACK PAIN [None]
  - LETHARGY [None]
  - NAUSEA [None]
